FAERS Safety Report 5003295-9 (Version None)
Quarter: 2006Q2

REPORT INFORMATION
  Report Type: 
  Country: None (occurrence: None)
  Receive Date: 20060511
  Receipt Date: 20060503
  Transmission Date: 20061013
  Serious: Yes (Death, Hospitalization)
  Sender: FDA-Public Use
  Company Number: 200610366BWH

PATIENT
  Age: 88 Year
  Sex: Male
  Weight: 66.452 kg

DRUGS (6)
  1. SORAFENIB [Suspect]
     Indication: METASTATIC RENAL CELL CARCINOMA
     Dosage: 400 MG, BID, ORAL
     Route: 048
     Dates: start: 20051215, end: 20051228
  2. LIPITOR [Concomitant]
  3. HYZAAR [Concomitant]
  4. TOPROL-XL [Concomitant]
  5. MULTIVITAMIN [Concomitant]
  6. ISORBIDE [Concomitant]

REACTIONS (8)
  - ASTHENIA [None]
  - ATRIAL FIBRILLATION [None]
  - BLOOD CREATINE PHOSPHOKINASE INCREASED [None]
  - BLOOD CREATININE INCREASED [None]
  - FIBRIN D DIMER INCREASED [None]
  - LUNG CANCER METASTATIC [None]
  - MALIGNANT NEOPLASM PROGRESSION [None]
  - VENTRICULAR EXTRASYSTOLES [None]
